FAERS Safety Report 8619738-5 (Version None)
Quarter: 2012Q3

REPORT INFORMATION
  Report Type: 
  Country: None (occurrence: None)
  Receive Date: 20120824
  Receipt Date: 20120807
  Transmission Date: 20120928
  Serious: Yes (Hospitalization, Other)
  Sender: FDA-Public Use
  Company Number: JP-009507513-1208JPN008087

PATIENT

DRUGS (8)
  1. REBETOL [Suspect]
     Dosage: UNK
  2. TELAVIC [Suspect]
     Indication: HEPATITIS C
     Dosage: 2250 MG, UNK
     Route: 048
     Dates: start: 20120611, end: 20120615
  3. VALSARTAN  AND HYDROCHLOROTHIAZIDE [Concomitant]
     Indication: HYPERTENSION
     Dosage: 86.25 UNK, UNK
     Route: 048
  4. REBETOL [Suspect]
     Dosage: 200 MG, UNK
     Route: 048
     Dates: start: 20120625, end: 20120716
  5. TELAVIC [Suspect]
     Dosage: 1500 MG, UNK
     Route: 048
     Dates: start: 20120616, end: 20120702
  6. PEG-INTRON [Suspect]
     Indication: HEPATITIS C
     Dosage: 1.5 MICROGRAM PER KILOGRAM, QW
     Route: 058
     Dates: start: 20120611
  7. REBETOL [Suspect]
     Indication: HEPATITIS C
     Dosage: 400 MG, UNK
     Route: 048
     Dates: start: 20120611, end: 20120624
  8. TELAVIC [Suspect]
     Dosage: 1000 UNK, UNK
     Route: 048
     Dates: start: 20120703, end: 20120709

REACTIONS (2)
  - DIZZINESS [None]
  - HAEMOGLOBIN DECREASED [None]
